FAERS Safety Report 7532994-X (Version None)
Quarter: 2011Q2

REPORT INFORMATION
  Report Type: 
  Country: None (occurrence: None)
  Receive Date: 20110608
  Receipt Date: 20110602
  Transmission Date: 20111010
  Serious: Yes (Death, Life-Threatening, Other)
  Sender: FDA-Public Use
  Company Number: US-CELGENEUS-163-21880-11051761

PATIENT
  Sex: Female

DRUGS (9)
  1. MULTI-VITAMINS [Concomitant]
     Route: 065
  2. COUMADIN [Concomitant]
     Route: 065
     Dates: start: 20110408
  3. DEXAMETHASONE [Concomitant]
     Indication: MULTIPLE MYELOMA
     Dosage: 40 MILLIGRAM
     Route: 065
  4. ZOMETA [Concomitant]
     Indication: MULTIPLE MYELOMA
     Route: 065
  5. COENZYME Q10 [Concomitant]
     Route: 065
  6. HYDROCHLOROTHIAZIDE [Concomitant]
     Route: 065
  7. VERAPAMIL [Concomitant]
     Route: 065
  8. REVLIMID [Suspect]
     Indication: MULTIPLE MYELOMA
     Dosage: 25 MILLIGRAM
     Route: 048
     Dates: start: 20110401
  9. LISINOPRIL [Concomitant]
     Route: 065

REACTIONS (1)
  - ISCHAEMIC STROKE [None]
